FAERS Safety Report 24455855 (Version 2)
Quarter: 2024Q4

REPORT INFORMATION
  Report Type: Report from Study
  Country: US (occurrence: US)
  Receive Date: 20241017
  Receipt Date: 20241018
  Transmission Date: 20250115
  Serious: No
  Sender: ROCHE
  Company Number: US-ROCHE-3500918

PATIENT
  Age: 62 Year
  Sex: Female
  Weight: 62.32 kg

DRUGS (10)
  1. RITUXAN [Suspect]
     Active Substance: RITUXIMAB
     Indication: Polymyositis
     Dosage: INFUSE 1000 MG ON DAY 0 AND DAY 15 ONCE EVERY 6 MONTHS? FREQUENCY TEXT:DAY 0 AND DAY 15 ONCE EVERY 6
     Route: 042
  2. RITUXAN [Suspect]
     Active Substance: RITUXIMAB
     Indication: Myopathy
  3. DIPHENHYDRAMINE [Concomitant]
     Active Substance: DIPHENHYDRAMINE
     Dosage: 25.00 MG IV PRE INFUSION
  4. SOLU-MEDROL [Concomitant]
     Active Substance: METHYLPREDNISOLONE SODIUM SUCCINATE
  5. TYLENOL [Concomitant]
     Active Substance: ACETAMINOPHEN
     Dosage: 650 MG PRE INFUSION
     Dates: start: 20231204
  6. IBUPROFEN [Concomitant]
     Active Substance: IBUPROFEN
     Dosage: 800 MG?TAKE 1 TABLET BY ORAL ROUTE 3 TIMES IN DAY
     Dates: start: 20221121
  7. MYFORTIC [Concomitant]
     Active Substance: MYCOPHENOLATE SODIUM
     Dosage: 180 MG TABLET DELAYED RELEASE ?TAKE ONE TABLET BY MOUTH 2 TIMES IN DAY
     Dates: start: 20230822
  8. VITAMIN D2 [Concomitant]
     Active Substance: ERGOCALCIFEROL
     Dosage: 1250 MCG, TAKE 1 CAPSULE BY ORAL ROUTE 2 TIMES EVERY WEEK
     Dates: start: 20230330
  9. VITAMIN D3 [Concomitant]
     Active Substance: CHOLECALCIFEROL
     Dosage: 125 MCG, 1 TAB DAILY
     Dates: start: 20221123
  10. VOLTAREN [Concomitant]
     Active Substance: DICLOFENAC SODIUM
     Dosage: 1 % TOPICAL GEL, APPLY BY TOPICAL ROUTE 2 TIMES EVERY DAY TO THE AFFETCED AREA
     Dates: start: 20220228

REACTIONS (2)
  - Off label use [Unknown]
  - No adverse event [Unknown]
